FAERS Safety Report 13826394 (Version 1)
Quarter: 2017Q3

REPORT INFORMATION
  Report Type: Spontaneous
  Country: US (occurrence: US)
  Receive Date: 20170802
  Receipt Date: 20170802
  Transmission Date: 20171127
  Serious: No
  Sender: FDA-Public Use
  Company Number: US-SHIRE-US201713886

PATIENT
  Sex: Female

DRUGS (1)
  1. XIIDRA [Suspect]
     Active Substance: LIFITEGRAST
     Indication: DRY EYE
     Dosage: 2 GTT, 2X/DAY:BID
     Route: 047
     Dates: start: 20170530

REACTIONS (9)
  - Instillation site erythema [Not Recovered/Not Resolved]
  - Eye discharge [Unknown]
  - Vision blurred [Unknown]
  - Instillation site swelling [Unknown]
  - Instillation site irritation [Unknown]
  - Instillation site pain [Not Recovered/Not Resolved]
  - Instillation site reaction [Unknown]
  - Instillation site inflammation [Not Recovered/Not Resolved]
  - Dysgeusia [Unknown]
